FAERS Safety Report 7541097-X (Version None)
Quarter: 2011Q2

REPORT INFORMATION
  Report Type: 
  Country: None (occurrence: None)
  Receive Date: 20110610
  Receipt Date: 20110530
  Transmission Date: 20111010
  Serious: Yes (Hospitalization)
  Sender: FDA-Public Use
  Company Number: US-WATSON-2011-08006

PATIENT
  Age: 68 Year
  Sex: Female

DRUGS (1)
  1. ISONIAZID [Suspect]
     Indication: TUBERCULOSIS
     Dosage: UNK

REACTIONS (3)
  - RENAL FAILURE ACUTE [None]
  - HEPATOTOXICITY [None]
  - DEHYDRATION [None]
